FAERS Safety Report 11460747 (Version 5)
Quarter: 2015Q4

REPORT INFORMATION
  Report Type: Report from Study
  Country: ZA (occurrence: ZA)
  Receive Date: 20150904
  Receipt Date: 20151124
  Transmission Date: 20160304
  Serious: Yes (Hospitalization, Congenital Anomaly, Other)
  Sender: FDA-Public Use
  Company Number: ZA-GILEAD-2015-0169632

PATIENT
  Age: 0 Day
  Sex: Female
  Weight: 2.7 kg

DRUGS (3)
  1. EMTRICITABINE/TENOFOVIR DISOPROXIL FUMARATE [Suspect]
     Active Substance: EMTRICITABINE\TENOFOVIR DISOPROXIL
     Indication: HIV INFECTION
     Dosage: 1 DF, QD
     Route: 064
     Dates: start: 20141023, end: 20150629
  2. FOLIC ACID. [Concomitant]
     Active Substance: FOLIC ACID
     Dosage: UNK
  3. IRON [Concomitant]
     Active Substance: IRON
     Dosage: UNK

REACTIONS (7)
  - Staphylococcal sepsis [Recovered/Resolved]
  - Oesophageal fistula [Recovered/Resolved]
  - Ventricular septal defect [Recovered/Resolved]
  - Oesophageal atresia [Recovered/Resolved]
  - Foetal distress syndrome [Unknown]
  - Patent ductus arteriosus [Not Recovered/Not Resolved]
  - Pneumonia [Unknown]

NARRATIVE: CASE EVENT DATE: 20150629
